FAERS Safety Report 16003274 (Version 1)
Quarter: 2019Q1

REPORT INFORMATION
  Report Type: Spontaneous
  Country: AU (occurrence: AU)
  Receive Date: 20190225
  Receipt Date: 20190225
  Transmission Date: 20190418
  Serious: Yes (Other)
  Sender: FDA-Public Use
  Company Number: AU-MACLEODS PHARMACEUTICALS US LTD-MAC2019020236

PATIENT

DRUGS (1)
  1. RISEDRONATE [Suspect]
     Active Substance: RISEDRONATE SODIUM
     Indication: OSTEOPOROSIS
     Dosage: TWO DOSES, 1 WEEK APART
     Route: 065

REACTIONS (3)
  - Parophthalmia [Recovered/Resolved]
  - Periorbital oedema [Recovered/Resolved]
  - Diplopia [Recovered/Resolved]
